FAERS Safety Report 17103833 (Version 1)
Quarter: 2019Q4

REPORT INFORMATION
  Report Type: Spontaneous
  Country: ZA (occurrence: ZA)
  Receive Date: 20191203
  Receipt Date: 20191203
  Transmission Date: 20200122
  Serious: No
  Sender: FDA-Public Use
  Company Number: ZA-LUPIN PHARMACEUTICALS INC.-2019-06292

PATIENT
  Sex: Female

DRUGS (5)
  1. ZARTAN 50 MG [Suspect]
     Active Substance: LOSARTAN POTASSIUM
     Indication: HYPERTENSION
     Dosage: 50 MILLIGRAM, UNK
     Route: 048
     Dates: end: 201908
  2. MYOPRIN [Concomitant]
     Active Substance: ASPIRIN
     Indication: ANTICOAGULANT THERAPY
     Dosage: 100 MILLIGRAM, UNK
     Route: 048
  3. MYLAN FUROSEMIDE [Concomitant]
     Active Substance: FUROSEMIDE
     Indication: DIURETIC THERAPY
     Dosage: 40 MILLIGRAM, UNK
     Route: 048
  4. BILOCOR [Concomitant]
     Active Substance: BISOPROLOL FUMARATE
     Indication: HYPERTENSION
     Dosage: 5 MILLIGRAM, UNK
     Route: 048
  5. ASPAVOR [Concomitant]
     Active Substance: ATORVASTATIN
     Indication: BLOOD CHOLESTEROL
     Dosage: 40 MILLIGRAM, UNK
     Route: 048

REACTIONS (1)
  - Allergic cough [Unknown]
